FAERS Safety Report 13986892 (Version 7)
Quarter: 2018Q2

REPORT INFORMATION
  Report Type: Spontaneous
  Country: US (occurrence: US)
  Receive Date: 20170919
  Receipt Date: 20180606
  Transmission Date: 20180711
  Serious: Yes (Congenital Anomaly, Other)
  Sender: FDA-Public Use
  Company Number: PHEH2017US030137

PATIENT
  Sex: Female

DRUGS (1)
  1. ZOFRAN [Suspect]
     Active Substance: ONDANSETRON HYDROCHLORIDE
     Indication: FOETAL EXPOSURE DURING PREGNANCY
     Dosage: MOTHER^S DOSE: 04 MG, QD
     Route: 064

REACTIONS (27)
  - Vomiting [Unknown]
  - Chest pain [Unknown]
  - Cardiac murmur [Unknown]
  - Pulmonary valve disease [Unknown]
  - Pharyngitis [Unknown]
  - Anaemia [Unknown]
  - Anxiety [Unknown]
  - Congenital cardiovascular anomaly [Unknown]
  - Tonsillar hypertrophy [Unknown]
  - Eustachian tube dysfunction [Unknown]
  - Mitral valve incompetence [Unknown]
  - Cystitis [Unknown]
  - Apnoea [Unknown]
  - Gastrooesophageal reflux disease [Unknown]
  - Pyrexia [Unknown]
  - Adenoidal hypertrophy [Unknown]
  - Foetal exposure during pregnancy [Unknown]
  - Diarrhoea [Unknown]
  - Pulmonary valve stenosis [Unknown]
  - Bronchitis [Unknown]
  - Otitis media chronic [Unknown]
  - Mitral valve prolapse [Unknown]
  - Injury [Unknown]
  - Irritable bowel syndrome [Unknown]
  - Iron deficiency anaemia [Unknown]
  - Tonsillitis [Unknown]
  - Cerumen impaction [Unknown]
